FAERS Safety Report 8066785-0 (Version None)
Quarter: 2012Q1

REPORT INFORMATION
  Report Type: 
  Country: None (occurrence: None)
  Receive Date: 20120117
  Receipt Date: 20120106
  Transmission Date: 20120608
  Serious: Yes (Death)
  Sender: FDA-Public Use
  Company Number: IMP-E2B-00000573

PATIENT
  Age: 35 Year
  Sex: Male

DRUGS (3)
  1. CLONIDIN (CLONIDINE HYDROCHLORIDE) [Concomitant]
  2. SEROQUEL [Concomitant]
  3. LINEZOLID PLUS CEFTAZIDIME (LINEZOLID PLUS CEFTAZIDIME) (LINEZOLID PLU [Suspect]
     Indication: PNEUMONIA
     Dosage: 1500 MG (500 MG, DAILY) INTRAVENOUS
     Route: 042
     Dates: start: 20070209, end: 20070216

REACTIONS (1)
  - COMPLETED SUICIDE [None]
